FAERS Safety Report 20951910 (Version 1)
Quarter: 2022Q2

REPORT INFORMATION
  Report Type: Spontaneous
  Country: DE (occurrence: DE)
  Receive Date: 20220613
  Receipt Date: 20220613
  Transmission Date: 20220721
  Serious: Yes (Hospitalization, Other)
  Sender: FDA-Public Use
  Company Number: None

PATIENT
  Age: 105 Day
  Sex: Male
  Weight: 4 kg

DRUGS (4)
  1. VANCOMYCIN [Suspect]
     Active Substance: VANCOMYCIN
     Indication: Agitation
     Dosage: 60 MG, Q12H, ((31,4 MG/KG/D)
     Route: 042
     Dates: start: 20220502, end: 20220505
  2. VANCOMYCIN [Suspect]
     Active Substance: VANCOMYCIN
     Indication: C-reactive protein increased
  3. VANCOMYCIN [Suspect]
     Active Substance: VANCOMYCIN
     Indication: Pyrexia
  4. VANCOMYCIN [Suspect]
     Active Substance: VANCOMYCIN
     Indication: Faeces soft

REACTIONS (2)
  - Hepatitis [Recovered/Resolved]
  - Transaminases increased [Recovered/Resolved]

NARRATIVE: CASE EVENT DATE: 20220502
